FAERS Safety Report 7817081-5 (Version None)
Quarter: 2011Q4

REPORT INFORMATION
  Report Type: 
  Country: None (occurrence: None)
  Receive Date: 20111017
  Receipt Date: 20111011
  Transmission Date: 20120403
  Serious: Yes (Hospitalization, Other)
  Sender: FDA-Public Use
  Company Number: PHEH2011US06615

PATIENT
  Age: 23 Year
  Sex: Male

DRUGS (2)
  1. TOBI [Suspect]
     Dosage: 300 MG, TWO TIMES A DAY FOR 28 DAYS ON AND 28 DAYS OFF
     Dates: start: 20110802
  2. PULMOZYME [Concomitant]

REACTIONS (2)
  - UPPER RESPIRATORY TRACT INFECTION [None]
  - PSEUDOMONAS INFECTION [None]
